FAERS Safety Report 24955786 (Version 2)
Quarter: 2025Q1

REPORT INFORMATION
  Report Type: Report from Study
  Country: PH (occurrence: PH)
  Receive Date: 20250211
  Receipt Date: 20250218
  Transmission Date: 20250409
  Serious: Yes (Death)
  Sender: OTSUKA
  Company Number: PH-MMM-Otsuka-02LOZURJ

PATIENT

DRUGS (1)
  1. TOLVAPTAN [Suspect]
     Active Substance: TOLVAPTAN
     Indication: Product used for unknown indication
     Dosage: 0.25 DF, BIW (15MG 1/4 TABLET EVERY MONDAY AND THURSDAY)
     Route: 048
     Dates: start: 20230205

REACTIONS (1)
  - Death [Fatal]

NARRATIVE: CASE EVENT DATE: 20240115
